FAERS Safety Report 5205607-X (Version None)
Quarter: 2007Q1

REPORT INFORMATION
  Report Type: 
  Country: None (occurrence: None)
  Receive Date: 20070108
  Receipt Date: 20070102
  Transmission Date: 20070707
  Serious: Yes (Other)
  Sender: FDA-Public Use
  Company Number: 2006SP008120

PATIENT
  Age: 56 Year
  Sex: Male
  Weight: 89.8122 kg

DRUGS (7)
  1. PEG-INTRON [Suspect]
     Indication: HEPATITIS C
     Dosage: SC
     Route: 058
     Dates: start: 20060920
  2. RIBAVIRIN [Suspect]
     Indication: HEPATITIS C
     Dosage: PO
     Route: 048
     Dates: start: 20060920
  3. NEURONTIN (CON.) [Concomitant]
  4. SEROQUEL (CON.) [Concomitant]
  5. SINEQUAN (CON.) [Concomitant]
  6. TRAZODONE HCI (CON.) [Concomitant]
  7. ULTRAM (CON.) [Concomitant]

REACTIONS (13)
  - ABDOMINAL DISCOMFORT [None]
  - ABNORMAL FAECES [None]
  - ANAEMIA [None]
  - ARTHRALGIA [None]
  - CONSTIPATION [None]
  - DIARRHOEA [None]
  - HAEMORRHOIDS [None]
  - INSOMNIA [None]
  - MUSCLE SPASMS [None]
  - PYREXIA [None]
  - TACHYPNOEA [None]
  - WEIGHT DECREASED [None]
  - WHITE BLOOD CELL COUNT DECREASED [None]
